FAERS Safety Report 23367272 (Version 1)
Quarter: 2024Q1

REPORT INFORMATION
  Report Type: Spontaneous
  Country: US (occurrence: US)
  Receive Date: 20240104
  Receipt Date: 20240104
  Transmission Date: 20240410
  Serious: Yes (Other)
  Sender: FDA-Public Use
  Company Number: US-PFIZER INC-202300455934

PATIENT
  Age: 60 Year
  Sex: Female

DRUGS (7)
  1. IBRANCE [Suspect]
     Active Substance: PALBOCICLIB
     Dosage: DAILY X21 DAYS Q28 DAYS
     Route: 048
     Dates: start: 20231203
  2. IBRANCE [Suspect]
     Active Substance: PALBOCICLIB
     Dosage: DAILY X21 DAYS Q28 DAYS
     Route: 048
  3. ARIMIDEX [Concomitant]
     Active Substance: ANASTROZOLE
     Dosage: 1 MG
     Route: 048
  4. VALSARTAN [Concomitant]
     Active Substance: VALSARTAN
     Dosage: 160 MG
     Route: 048
  5. XGEVA [Concomitant]
     Active Substance: DENOSUMAB
     Dosage: 120 MG
     Route: 058
  6. VENOFER [Concomitant]
     Active Substance: IRON SUCROSE
     Dosage: 20 MG (SOLUTION)
     Route: 042
  7. ELIQUIS [Concomitant]
     Active Substance: APIXABAN
     Dosage: 5 MG
     Route: 048

REACTIONS (2)
  - Thrombosis [Recovering/Resolving]
  - White blood cell count decreased [Recovering/Resolving]
